FAERS Safety Report 23421296 (Version 1)
Quarter: 2024Q1

REPORT INFORMATION
  Report Type: Spontaneous
  Country: KR (occurrence: None)
  Receive Date: 20240119
  Receipt Date: 20240119
  Transmission Date: 20240409
  Serious: Yes (Other)
  Sender: FDA-Public Use
  Company Number: 2024A011838

PATIENT
  Age: 55 Year
  Sex: Female

DRUGS (1)
  1. GEFITINIB [Suspect]
     Active Substance: GEFITINIB
     Indication: Adenocarcinoma
     Route: 048
     Dates: start: 201708, end: 201902

REACTIONS (1)
  - Malignant neoplasm progression [Unknown]
